FAERS Safety Report 8777129 (Version 1)
Quarter: 2012Q4

REPORT INFORMATION
  Report Type: 
  Country: US (occurrence: US)
  Receive Date: 20120911
  Receipt Date: 20120911
  Transmission Date: 20130627
  Serious: No
  Sender: FDA-Public Use
  Company Number: US-009507513-1209USA002357

PATIENT

DRUGS (1)
  1. NUVARING [Suspect]
     Indication: CONTRACEPTION
     Dosage: 1 DF, q3w
     Route: 067
     Dates: start: 20120822

REACTIONS (3)
  - Thrombosis [Unknown]
  - Metrorrhagia [Unknown]
  - Headache [Unknown]
